FAERS Safety Report 8854434 (Version 1)
Quarter: 2012Q4

REPORT INFORMATION
  Report Type: 
  Country: CN (occurrence: CN)
  Receive Date: 20121023
  Receipt Date: 20121023
  Transmission Date: 20130627
  Serious: Yes (Other)
  Sender: FDA-Public Use
  Company Number: CN-PFIZER INC-2012251146

PATIENT
  Age: 51 Year
  Sex: Female

DRUGS (1)
  1. CELECOXIB [Suspect]
     Indication: BACK PAIN
     Dosage: 400 mg, 2x/day
     Route: 048
     Dates: start: 20121009, end: 20121009

REACTIONS (4)
  - Overdose [Recovered/Resolved]
  - Hypersensitivity [Recovered/Resolved]
  - Effusion [Recovered/Resolved]
  - Blister [Recovered/Resolved]
